FAERS Safety Report 23356528 (Version 1)
Quarter: 2024Q1

REPORT INFORMATION
  Report Type: Other
  Country: GB (occurrence: GB)
  Receive Date: 20240102
  Receipt Date: 20240102
  Transmission Date: 20240410
  Serious: Yes (Other)
  Sender: FDA-Public Use
  Company Number: GB-MACLEODS PHARMA EU LTD-MAC2023045089

PATIENT

DRUGS (1)
  1. SILDENAFIL [Suspect]
     Active Substance: SILDENAFIL
     Indication: Product used for unknown indication
     Dosage: 50 GRAM, 50 GRAM TABLET IN THE AFTERNOON
     Route: 065

REACTIONS (3)
  - Photopsia [Not Recovered/Not Resolved]
  - Eye pain [Unknown]
  - Overdose [Unknown]

NARRATIVE: CASE EVENT DATE: 20231013
